FAERS Safety Report 6250207-6 (Version None)
Quarter: 2009Q2

REPORT INFORMATION
  Report Type: 
  Country: None (occurrence: None)
  Receive Date: 20090629
  Receipt Date: 20080507
  Transmission Date: 20091009
  Serious: No
  Sender: FDA-Public Use
  Company Number: US-BAUSCH-2008BL001276

PATIENT
  Age: 78 Year
  Sex: Male

DRUGS (3)
  1. BRIMONIDINE TARTRATE [Suspect]
     Indication: GLAUCOMA
     Route: 047
     Dates: start: 20060324
  2. NORVASC [Concomitant]
     Indication: HYPERTENSION
     Route: 048
  3. COLCHICINE [Concomitant]
     Indication: GOUT
     Route: 048

REACTIONS (2)
  - EYE DISORDER [None]
  - MEDICATION RESIDUE [None]
